FAERS Safety Report 16491338 (Version 1)
Quarter: 2019Q2

REPORT INFORMATION
  Report Type: Spontaneous
  Country: US (occurrence: US)
  Receive Date: 20190628
  Receipt Date: 20190628
  Transmission Date: 20190711
  Serious: No
  Sender: FDA-Public Use
  Company Number: US-ASTRAZENECA-2019SE81448

PATIENT
  Sex: Female

DRUGS (1)
  1. BYETTA [Suspect]
     Active Substance: EXENATIDE
     Dosage: 5.0UG UNKNOWN
     Route: 058

REACTIONS (1)
  - Multiple allergies [Unknown]
